FAERS Safety Report 4344978-3 (Version None)
Quarter: 2004Q2

REPORT INFORMATION
  Report Type: 
  Country: None (occurrence: None)
  Receive Date: 20040420
  Receipt Date: 20040405
  Transmission Date: 20050107
  Serious: Yes (Hospitalization)
  Sender: FDA-Public Use
  Company Number: 2004-0006893

PATIENT
  Age: 6 Year
  Sex: Male
  Weight: 23.8 kg

DRUGS (3)
  1. EMTRICITABINE (EMTRICITABINE) [Suspect]
     Indication: HIV INFECTION
     Dosage: 6 MG/KG, 1 IN 1 D, ORAL
     Route: 048
     Dates: start: 20020610, end: 20040405
  2. STAVUDINE (STAVUDINE) [Suspect]
     Indication: HIV INFECTION
     Dosage: 1 MG/KG,  2 IN 1 D, ORAL
     Route: 048
     Dates: start: 20020610, end: 20040405
  3. KALETRA [Concomitant]

REACTIONS (2)
  - PANCREATITIS [None]
  - PNEUMONIA [None]
